FAERS Safety Report 25091469 (Version 3)
Quarter: 2025Q2

REPORT INFORMATION
  Report Type: Spontaneous
  Country: US (occurrence: US)
  Receive Date: 20250318
  Receipt Date: 20250618
  Transmission Date: 20250716
  Serious: No
  Sender: SANOFI AVENTIS
  Company Number: US-SA-2025SA077041

PATIENT
  Age: 68 Year
  Sex: Female

DRUGS (2)
  1. DUPIXENT [Suspect]
     Active Substance: DUPILUMAB
     Indication: Asthma
     Route: 058
     Dates: start: 202412, end: 202412
  2. DUPIXENT [Suspect]
     Active Substance: DUPILUMAB
     Dosage: 300 MG, QOW
     Route: 058

REACTIONS (8)
  - Musculoskeletal stiffness [Unknown]
  - Joint stiffness [Unknown]
  - Respiratory tract infection [Recovering/Resolving]
  - Rebound eczema [Unknown]
  - Arthralgia [Unknown]
  - Asthma [Unknown]
  - Rebound effect [Unknown]
  - Rash [Unknown]

NARRATIVE: CASE EVENT DATE: 20250101
